FAERS Safety Report 20178022 (Version 3)
Quarter: 2022Q1

REPORT INFORMATION
  Report Type: Spontaneous
  Country: CA (occurrence: CA)
  Receive Date: 20211213
  Receipt Date: 20220106
  Transmission Date: 20220423
  Serious: Yes (Other)
  Sender: FDA-Public Use
  Company Number: CA-SA-SAC20211208001126

PATIENT
  Sex: Female

DRUGS (51)
  1. BISACODYL [Suspect]
     Active Substance: BISACODYL
     Dosage: UNK
  2. GRAMICIDIN\NEOMYCIN SULFATE\POLYMYXIN B SULFATE [Suspect]
     Active Substance: GRAMICIDIN\NEOMYCIN SULFATE\POLYMYXIN B SULFATE
     Indication: Product used for unknown indication
     Dosage: UNKN
  3. METRONIDAZOLE [Suspect]
     Active Substance: METRONIDAZOLE
     Dosage: UNKN
  4. SODIUM CHLORIDE [Suspect]
     Active Substance: SODIUM CHLORIDE
     Indication: Product used for unknown indication
     Dosage: INTRA-NASAL
     Route: 045
  5. ACETAMINOPHEN [Suspect]
     Active Substance: ACETAMINOPHEN
     Indication: Product used for unknown indication
  6. ALPRAZOLAM [Suspect]
     Active Substance: ALPRAZOLAM
     Indication: Product used for unknown indication
  7. AMOXICILLIN TRIHYDRATE [Suspect]
     Active Substance: AMOXICILLIN
     Indication: Product used for unknown indication
     Dosage: UNK
  8. HYDROCHLOROTHIAZIDE [Suspect]
     Active Substance: HYDROCHLOROTHIAZIDE
     Indication: Product used for unknown indication
     Route: 005
  9. ATORVASTATIN CALCIUM [Suspect]
     Active Substance: ATORVASTATIN CALCIUM
     Indication: Product used for unknown indication
  10. ATROPINE SULFATE [Suspect]
     Active Substance: ATROPINE SULFATE
     Route: 048
  11. FLUTICASONE FUROATE [Suspect]
     Active Substance: FLUTICASONE FUROATE
  12. AZITHROMYCIN [Suspect]
     Active Substance: AZITHROMYCIN
  13. SULFAMETHOXAZOLE\TRIMETHOPRIM [Suspect]
     Active Substance: SULFAMETHOXAZOLE\TRIMETHOPRIM
  14. BETAMETHASONE DIPROPIONATE [Suspect]
     Active Substance: BETAMETHASONE DIPROPIONATE
  15. CLARITHROMYCIN [Suspect]
     Active Substance: CLARITHROMYCIN
  16. CALCIUM CARBONATE [Suspect]
     Active Substance: CALCIUM CARBONATE
  17. CETIRIZINE HYDROCHLORIDE [Suspect]
     Active Substance: CETIRIZINE HYDROCHLORIDE
  18. CHOLECALCIFEROL [Suspect]
     Active Substance: CHOLECALCIFEROL
  19. BIAXIN [Suspect]
     Active Substance: CLARITHROMYCIN
     Dosage: EXTENDED RELEASE
  20. CLOTRIMAZOLE [Suspect]
     Active Substance: CLOTRIMAZOLE
  21. CUPRIC OXIDE [Suspect]
     Active Substance: CUPRIC OXIDE
  22. TOCOPHEROL [Suspect]
     Active Substance: TOCOPHEROL
  23. DESONIDE [Suspect]
     Active Substance: DESONIDE
  24. HYDROMORPHONE HYDROCHLORIDE [Suspect]
     Active Substance: HYDROMORPHONE HYDROCHLORIDE
  25. DIPHENHYDRAMINE HYDROCHLORIDE [Suspect]
     Active Substance: DIPHENHYDRAMINE HYDROCHLORIDE
  26. BUDESONIDE [Suspect]
     Active Substance: BUDESONIDE
     Route: 048
  27. ERTAPENEM SODIUM [Suspect]
     Active Substance: ERTAPENEM SODIUM
  28. FLUTICASONE PROPIONATE [Suspect]
     Active Substance: FLUTICASONE PROPIONATE
     Dosage: SPRAY METERED DOSE
  29. GLYCERIN [Suspect]
     Active Substance: GLYCERIN
     Route: 048
  30. ADALIMUMAB [Suspect]
     Active Substance: ADALIMUMAB
     Route: 058
  31. POLYETHYLENE GLYCOL 3350\POTASSIUM CHLORIDE\SODIUM BICARBONATE\SODIUM [Suspect]
     Active Substance: POLYETHYLENE GLYCOL 3350\POTASSIUM CHLORIDE\SODIUM BICARBONATE\SODIUM CHLORIDE
  32. MAGNESIUM SULFATE [Suspect]
     Active Substance: MAGNESIUM SULFATE
  33. MORPHINE SULFATE [Suspect]
     Active Substance: MORPHINE SULFATE
     Route: 061
  34. MUPIROCIN [Suspect]
     Active Substance: MUPIROCIN
     Indication: Product used for unknown indication
     Dosage: UNK
     Route: 061
  35. NADOLOL [Suspect]
     Active Substance: NADOLOL
  36. NICOTINE [Suspect]
     Active Substance: NICOTINE
     Dosage: UNK
  37. NICOTINE POLACRILEX [Suspect]
     Active Substance: NICOTINE
  38. PANTOPRAZOLE [Suspect]
     Active Substance: PANTOPRAZOLE
  39. MESALAMINE [Suspect]
     Active Substance: MESALAMINE
  40. PREDNISONE [Suspect]
     Active Substance: PREDNISONE
  41. PREGABALIN [Suspect]
     Active Substance: PREGABALIN
  42. CARBOXYMETHYLCELLULOSE SODIUM [Suspect]
     Active Substance: CARBOXYMETHYLCELLULOSE SODIUM
     Route: 031
  43. SULFAMETHOXAZOLE\TRIMETHOPRIM [Suspect]
     Active Substance: SULFAMETHOXAZOLE\TRIMETHOPRIM
  44. TRIAMCINOLONE ACETONIDE [Suspect]
     Active Substance: TRIAMCINOLONE ACETONIDE
     Dosage: SUSPENSION
     Route: 014
  45. XANTOFYL PALMITATE [Suspect]
     Active Substance: XANTOFYL PALMITATE
  46. ZEAXANTHIN [Suspect]
     Active Substance: ZEAXANTHIN
  47. ZINC OXIDE [Suspect]
     Active Substance: ZINC OXIDE
  48. CALCIUM\VITAMIN D [Suspect]
     Active Substance: CALCIUM\VITAMIN D
  49. REFRESH TEARS [Suspect]
     Active Substance: CARBOXYMETHYLCELLULOSE SODIUM
     Indication: Product used for unknown indication
     Route: 047
  50. NICODERM CQ [Suspect]
     Active Substance: NICOTINE
     Indication: Product used for unknown indication
  51. VALSARTAN [Concomitant]
     Active Substance: VALSARTAN

REACTIONS (2)
  - Macular degeneration [Unknown]
  - Drug ineffective [Unknown]
